FAERS Safety Report 10073232 (Version 1)
Quarter: 2014Q2

REPORT INFORMATION
  Report Type: Spontaneous
  Country: US (occurrence: US)
  Receive Date: 20140411
  Receipt Date: 20140411
  Transmission Date: 20141212
  Serious: Yes (Disabling)
  Sender: FDA-Public Use
  Company Number: US-GLAXOSMITHKLINE-A1068254A

PATIENT
  Age: 47 Year
  Sex: Female

DRUGS (6)
  1. MEKINIST [Suspect]
     Indication: METASTATIC MALIGNANT MELANOMA
     Dosage: 2MG PER DAY
     Route: 048
  2. TAFINLAR [Suspect]
     Indication: METASTATIC MALIGNANT MELANOMA
     Dosage: 150MG TWICE PER DAY
     Route: 048
  3. HYDROCORTISONE [Concomitant]
  4. HORMONE REPLACEMENT THERAPY [Concomitant]
  5. ESTROGEN PATCH [Concomitant]
  6. PROTONIX [Concomitant]

REACTIONS (4)
  - Panniculitis [Not Recovered/Not Resolved]
  - Vasculitis [Not Recovered/Not Resolved]
  - Pain [Not Recovered/Not Resolved]
  - Local swelling [Not Recovered/Not Resolved]
